FAERS Safety Report 4868924-9 (Version None)
Quarter: 2005Q4

REPORT INFORMATION
  Report Type: 
  Country: None (occurrence: None)
  Receive Date: 20051223
  Receipt Date: 20051219
  Transmission Date: 20060501
  Serious: Yes (Hospitalization)
  Sender: FDA-Public Use
  Company Number: 2005-12-1002

PATIENT
  Age: 86 Year
  Sex: Male

DRUGS (1)
  1. NITRO-DUR [Suspect]
     Indication: ANGINA PECTORIS
     Dosage: TRANSDERMAL
     Route: 062
     Dates: start: 19860101

REACTIONS (1)
  - ULCER HAEMORRHAGE [None]
